FAERS Safety Report 6065173-6 (Version None)
Quarter: 2009Q1

REPORT INFORMATION
  Report Type: 
  Country: None (occurrence: None)
  Receive Date: 20090130
  Receipt Date: 20090120
  Transmission Date: 20090719
  Serious: Yes (Life-Threatening, Hospitalization)
  Sender: FDA-Public Use
  Company Number: 2007-00999

PATIENT
  Age: 58 Year
  Sex: Male
  Weight: 63 kg

DRUGS (8)
  1. VELCADE [Suspect]
     Indication: PERIPHERAL T-CELL LYMPHOMA UNSPECIFIED
     Dosage: 2.50 MG UNK UNK
     Dates: start: 20070314, end: 20070318
  2. CYCLOPHOSPHAMIDE [Suspect]
     Indication: PERIPHERAL T-CELL LYMPHOMA UNSPECIFIED
     Dosage: 2040.00 MG UNK INTRAVENOUS
     Route: 042
     Dates: start: 20070314, end: 20070314
  3. DOXORUBICIN HCL [Suspect]
     Indication: PERIPHERAL T-CELL LYMPHOMA UNSPECIFIED
     Dosage: 127.00 MG UNK INTRAVENOUS
     Route: 042
     Dates: start: 20070314, end: 20070318
  4. ELDISINE [Suspect]
     Indication: PERIPHERAL T-CELL LYMPHOMA UNSPECIFIED
     Dosage: 3.40 MG UNK INTRAVENOUS
     Route: 042
     Dates: start: 20070314, end: 20070318
  5. BLEOMYCIN SULFATE [Suspect]
     Indication: PERIPHERAL T-CELL LYMPHOMA UNSPECIFIED
     Dosage: 10.00 MG UNK INTRAVENOUS
     Route: 042
     Dates: start: 20070314, end: 20070318
  6. METHOTREXATE [Suspect]
     Indication: PERIPHERAL T-CELL LYMPHOMA UNSPECIFIED
     Dosage: 15.00 MG INTRATHECAL
     Route: 037
     Dates: start: 20070315, end: 20070315
  7. GRANOCYTE 13-34 (LENOGRASTIM) INJECTION 150 MG/M2 [Suspect]
     Indication: PERIPHERAL T-CELL LYMPHOMA UNSPECIFIED
  8. ISOPTIN [Concomitant]

REACTIONS (9)
  - CONFUSIONAL STATE [None]
  - DIARRHOEA [None]
  - ESCHERICHIA INFECTION [None]
  - GASTROINTESTINAL HAEMORRHAGE [None]
  - PROTEUS INFECTION [None]
  - RECTAL HAEMORRHAGE [None]
  - SEPSIS [None]
  - SEPTIC SHOCK [None]
  - THROMBOCYTOPENIA [None]
